FAERS Safety Report 5402238-3 (Version None)
Quarter: 2007Q3

REPORT INFORMATION
  Report Type: 
  Country: None (occurrence: None)
  Receive Date: 20070727
  Receipt Date: 20061107
  Transmission Date: 20080115
  Serious: Yes (Hospitalization)
  Sender: FDA-Public Use
  Company Number: THYM-11084

PATIENT
  Age: 50 Year
  Sex: Male
  Weight: 96.4 kg

DRUGS (5)
  1. THYMOGLOBULIN [Suspect]
     Indication: LIVER TRANSPLANT
     Dosage: 135 MG ONCE; IV
     Route: 042
     Dates: start: 20060921, end: 20060921
  2. THYMOGLOBULIN [Suspect]
     Indication: LIVER TRANSPLANT
     Dosage: 71 MG ONCE; IV
     Route: 042
     Dates: start: 20060922, end: 20060922
  3. THYMOGLOBULIN [Suspect]
     Indication: LIVER TRANSPLANT
     Dosage: 70 MG ONCE; IV
     Route: 042
     Dates: start: 20060927, end: 20060927
  4. FLUCONAZOLE [Concomitant]
  5. GANCICLOVIR [Concomitant]

REACTIONS (5)
  - CHOLESTASIS [None]
  - HEPATIC ISCHAEMIA [None]
  - KIDNEY TRANSPLANT REJECTION [None]
  - LIVER INJURY [None]
  - LIVER TRANSPLANT REJECTION [None]
